FAERS Safety Report 5811987-4 (Version None)
Quarter: 2008Q3

REPORT INFORMATION
  Report Type: 
  Country: None (occurrence: None)
  Receive Date: 20080714
  Receipt Date: 20080704
  Transmission Date: 20090109
  Serious: Yes (Hospitalization)
  Sender: FDA-Public Use
  Company Number: 114-21880-08060473

PATIENT
  Age: 78 Year
  Sex: Female

DRUGS (9)
  1. REVLIMID [Suspect]
     Indication: MULTIPLE MYELOMA
     Dosage: 10 MG, ORAL
     Route: 048
     Dates: start: 20080519, end: 20080520
  2. NOVO RAPID (INSULIN ASPART) [Concomitant]
  3. LANTIS (INSULIN GLARGINE) [Concomitant]
  4. PENPROCOUMON (PHENPROCOUMON) [Concomitant]
  5. LIPITOR [Concomitant]
  6. AMIODARON (AMIODARONE) [Concomitant]
  7. DIOVON (VALSARTAN) [Concomitant]
  8. FOSINOPRIL SODIUM [Concomitant]
  9. PANTOPRAZOLE SODIUM [Concomitant]

REACTIONS (5)
  - ATRIAL FIBRILLATION [None]
  - ATRIOVENTRICULAR BLOCK [None]
  - BLOOD CREATININE INCREASED [None]
  - HUMERUS FRACTURE [None]
  - JOINT DISLOCATION [None]
